FAERS Safety Report 7189827-3 (Version None)
Quarter: 2010Q4

REPORT INFORMATION
  Report Type: 
  Country: None (occurrence: None)
  Receive Date: 20101223
  Receipt Date: 20101220
  Transmission Date: 20110411
  Serious: No
  Sender: FDA-Public Use
  Company Number: US-BIOGENIDEC-2010BI044441

PATIENT
  Age: 46 Year
  Sex: Male

DRUGS (1)
  1. TYSABRI [Suspect]
     Indication: MULTIPLE SCLEROSIS
     Route: 042
     Dates: start: 20100820

REACTIONS (4)
  - NASOPHARYNGITIS [None]
  - PARANASAL SINUS HYPERSECRETION [None]
  - RHINORRHOEA [None]
  - THROAT IRRITATION [None]
